FAERS Safety Report 14902330 (Version 1)
Quarter: 2018Q2

REPORT INFORMATION
  Report Type: Spontaneous
  Country: US (occurrence: US)
  Receive Date: 20180516
  Receipt Date: 20180516
  Transmission Date: 20180711
  Serious: Yes (Other)
  Sender: FDA-Public Use
  Company Number: US-COOPERSURGICAL, INC.-US-2018CPS031892

PATIENT

DRUGS (1)
  1. PARAGARD T 380A [Suspect]
     Active Substance: COPPER
     Indication: CONTRACEPTION
     Dosage: UNK
     Route: 015
     Dates: start: 20090219, end: 20090916

REACTIONS (13)
  - Complication of device removal [Not Recovered/Not Resolved]
  - Herpes virus infection [Unknown]
  - Uterine adhesions [Recovered/Resolved]
  - Device dislocation [Not Recovered/Not Resolved]
  - Foreign body in reproductive tract [Not Recovered/Not Resolved]
  - Polyp [Recovered/Resolved]
  - Embedded device [Not Recovered/Not Resolved]
  - Hydrosalpinx [Recovered/Resolved]
  - Device breakage [Recovered/Resolved]
  - Fallopian tube cyst [Recovered/Resolved]
  - Pelvic pain [Unknown]
  - Endometriosis [Recovered/Resolved]
  - Vaginal discharge [Unknown]

NARRATIVE: CASE EVENT DATE: 20160916
